FAERS Safety Report 23617365 (Version 1)
Quarter: 2024Q1

REPORT INFORMATION
  Report Type: Spontaneous
  Country: FR (occurrence: FR)
  Receive Date: 20240311
  Receipt Date: 20240311
  Transmission Date: 20240410
  Serious: Yes (Other)
  Sender: FDA-Public Use
  Company Number: FR-GILEAD-2024-0663057

PATIENT

DRUGS (4)
  1. ENFUVIRTIDE [Suspect]
     Active Substance: ENFUVIRTIDE
     Indication: Product used for unknown indication
     Route: 064
     Dates: start: 202310
  2. TROGARZO [Suspect]
     Active Substance: IBALIZUMAB-UIYK
     Indication: Product used for unknown indication
     Route: 064
     Dates: start: 202310
  3. LENACAPAVIR [Suspect]
     Active Substance: LENACAPAVIR
     Indication: Product used for unknown indication
     Route: 064
     Dates: start: 20231017
  4. LENACAPAVIR [Suspect]
     Active Substance: LENACAPAVIR
     Route: 064

REACTIONS (2)
  - Congenital HIV infection [Not Recovered/Not Resolved]
  - Foetal exposure during pregnancy [Unknown]

NARRATIVE: CASE EVENT DATE: 20231220
